FAERS Safety Report 5910324-4 (Version None)
Quarter: 2008Q4

REPORT INFORMATION
  Report Type: 
  Country: None (occurrence: None)
  Receive Date: 20081007
  Receipt Date: 20071126
  Transmission Date: 20090506
  Serious: No
  Sender: FDA-Public Use
  Company Number: US-ASTRAZENECA-2007UW27077

PATIENT
  Age: 72 Year
  Sex: Female
  Weight: 102.1 kg

DRUGS (12)
  1. ARIMIDEX [Suspect]
     Indication: BREAST CANCER
     Route: 048
     Dates: start: 20070101
  2. LIPITOR [Concomitant]
  3. ACTOS [Concomitant]
  4. PROTONIX [Concomitant]
  5. ASPIRIN [Concomitant]
  6. ZETIA [Concomitant]
  7. BENACORT [Concomitant]
  8. FUROSEMIDE [Concomitant]
  9. PLAVIX [Concomitant]
  10. METOPROLOL TARTRATE [Concomitant]
  11. CALCIUM [Concomitant]
  12. INHALER [Concomitant]
     Route: 055

REACTIONS (8)
  - COUGH [None]
  - FATIGUE [None]
  - HOT FLUSH [None]
  - INSOMNIA [None]
  - NAUSEA [None]
  - OROPHARYNGEAL PAIN [None]
  - RESTLESSNESS [None]
  - TONSILLAR DISORDER [None]
